FAERS Safety Report 18852880 (Version 1)
Quarter: 2021Q1

REPORT INFORMATION
  Report Type: Spontaneous
  Country: GB (occurrence: GB)
  Receive Date: 20210205
  Receipt Date: 20210205
  Transmission Date: 20210420
  Serious: Yes (Other)
  Sender: FDA-Public Use
  Company Number: GB-MYLANLABS-2021M1006782

PATIENT
  Age: 60 Year
  Sex: Female
  Weight: 76.2 kg

DRUGS (2)
  1. AMLODIPINE [Suspect]
     Active Substance: AMLODIPINE BESYLATE
     Indication: HYPERTENSION
     Dosage: 5MG
     Route: 048
     Dates: start: 20191118, end: 20200414
  2. ATENOLOL. [Concomitant]
     Active Substance: ATENOLOL
     Indication: ILL-DEFINED DISORDER
     Dosage: UNK

REACTIONS (2)
  - Gastrooesophageal reflux disease [Recovered/Resolved with Sequelae]
  - Onychoclasis [Recovered/Resolved with Sequelae]

NARRATIVE: CASE EVENT DATE: 20200108
